FAERS Safety Report 5656066-4 (Version None)
Quarter: 2008Q1

REPORT INFORMATION
  Report Type: 
  Country: None (occurrence: None)
  Receive Date: 20080307
  Receipt Date: 20080228
  Transmission Date: 20080703
  Serious: Yes (Hospitalization, Other)
  Sender: FDA-Public Use
  Company Number: US-PFIZER INC-2008019919

PATIENT
  Sex: Female

DRUGS (4)
  1. CAMPTOSAR [Suspect]
     Indication: COLORECTAL CANCER METASTATIC
  2. ATROPINE [Concomitant]
  3. LOPERAMIDE HYDROCHLORIDE [Concomitant]
  4. DEXAMETHASONE TAB [Concomitant]

REACTIONS (6)
  - DYSARTHRIA [None]
  - HYPOAESTHESIA ORAL [None]
  - MYDRIASIS [None]
  - NAUSEA [None]
  - PARAESTHESIA ORAL [None]
  - VOMITING [None]
